FAERS Safety Report 5144477-5 (Version None)
Quarter: 2006Q4

REPORT INFORMATION
  Report Type: 
  Country: None (occurrence: None)
  Receive Date: 20061106
  Receipt Date: 20061102
  Transmission Date: 20070319
  Serious: Yes (Other)
  Sender: FDA-Public Use
  Company Number: GB-ROXANE LABORATORIES, INC-2006-BP-12837RO

PATIENT
  Age: 83 Year
  Sex: Male

DRUGS (2)
  1. DICLOFENAC [Suspect]
  2. CLOPIDOGREL [Suspect]

REACTIONS (5)
  - EYE HAEMORRHAGE [None]
  - HAEMORRHAGE [None]
  - OCULAR VASCULAR DISORDER [None]
  - RETINAL DETACHMENT [None]
  - VITREOUS HAEMORRHAGE [None]
